FAERS Safety Report 16610048 (Version 2)
Quarter: 2019Q3

REPORT INFORMATION
  Report Type: Spontaneous
  Country: US (occurrence: US)
  Receive Date: 20190722
  Receipt Date: 20190919
  Transmission Date: 20191004
  Serious: Yes (Hospitalization, Other)
  Sender: FDA-Public Use
  Company Number: US-PFIZER INC-2019313086

PATIENT
  Age: 56 Year
  Sex: Male

DRUGS (2)
  1. NAVANE [Suspect]
     Active Substance: THIOTHIXENE
     Dosage: UNK
     Dates: start: 2000, end: 2019
  2. INSULIN [Concomitant]
     Active Substance: INSULIN NOS
     Dosage: UNK

REACTIONS (8)
  - Syphilis [Unknown]
  - Pain [Unknown]
  - Impaired self-care [Unknown]
  - Movement disorder [Unknown]
  - Loss of personal independence in daily activities [Unknown]
  - Withdrawal syndrome [Unknown]
  - Suicidal ideation [Unknown]
  - Anger [Unknown]

NARRATIVE: CASE EVENT DATE: 2019
